FAERS Safety Report 7198941-8 (Version None)
Quarter: 2010Q4

REPORT INFORMATION
  Report Type: 
  Country: None (occurrence: None)
  Receive Date: 20101227
  Receipt Date: 20101217
  Transmission Date: 20110411
  Serious: Yes (Other)
  Sender: FDA-Public Use
  Company Number: US-PFIZER INC-2010174928

PATIENT
  Sex: Female

DRUGS (5)
  1. REVATIO [Suspect]
     Dosage: UNK
     Route: 048
  2. TIOTROPIUM BROMIDE MONOHYDRATE [Suspect]
  3. WARFARIN [Suspect]
  4. ALLOPURINOL [Suspect]
  5. POTASSIUM [Concomitant]
     Dosage: UNK

REACTIONS (8)
  - CARPAL TUNNEL SYNDROME [None]
  - DYSGEUSIA [None]
  - DYSPNOEA [None]
  - EPISTAXIS [None]
  - GOUT [None]
  - INAPPROPRIATE SCHEDULE OF DRUG ADMINISTRATION [None]
  - NAUSEA [None]
  - PARAESTHESIA [None]
